FAERS Safety Report 13660779 (Version 3)
Quarter: 2017Q3

REPORT INFORMATION
  Report Type: Spontaneous
  Country: US (occurrence: US)
  Receive Date: 20170616
  Receipt Date: 20170815
  Transmission Date: 20171127
  Serious: Yes (Other)
  Sender: FDA-Public Use
  Company Number: US-JUBILANT CADISTA PHARMACEUTICALS-2017JUB00183

PATIENT
  Age: 47 Year
  Sex: Female
  Weight: 74.83 kg

DRUGS (3)
  1. TRI-SPRINTEC [Concomitant]
     Active Substance: ETHINYL ESTRADIOL\NORGESTIMATE
     Dosage: 1 DOSAGE UNITS, 1X/DAY
     Route: 048
  2. LAMOTRIGINE. [Suspect]
     Active Substance: LAMOTRIGINE
     Dosage: 100 MG DAILY AT NIGHT ONE WEEK OF THE MONTH
     Route: 048
     Dates: start: 201702, end: 20170603
  3. LAMOTRIGINE. [Suspect]
     Active Substance: LAMOTRIGINE
     Indication: BIPOLAR DISORDER
     Dosage: 150 MG DAILY AT NIGHT THREE WEEKS OUT OF THE MONTH
     Route: 048
     Dates: start: 201702, end: 20170603

REACTIONS (5)
  - Homicidal ideation [Recovered/Resolved]
  - Mood altered [Recovered/Resolved]
  - Suicidal ideation [Recovered/Resolved]
  - Anger [Recovered/Resolved]
  - Aggression [Recovered/Resolved]

NARRATIVE: CASE EVENT DATE: 201705
